FAERS Safety Report 8312606-8 (Version None)
Quarter: 2012Q2

REPORT INFORMATION
  Report Type: 
  Country: None (occurrence: None)
  Receive Date: 20120424
  Receipt Date: 20120409
  Transmission Date: 20120825
  Serious: Yes (Death)
  Sender: FDA-Public Use
  Company Number: FK201201074

PATIENT
  Age: 33 Year
  Sex: Female

DRUGS (1)
  1. METHYLPREDNISOLONE [Suspect]
     Indication: NEURITIS
     Dosage: 1 GM, PER DAY, INTRAVENOUS (NOT OTHERWISE SPECIFIED)
     Route: 042

REACTIONS (3)
  - NECROTISING FASCIITIS [None]
  - MENTAL STATUS CHANGES [None]
  - SEPTIC SHOCK [None]
